APPROVED DRUG PRODUCT: CHLORPHENIRAMINE MALEATE
Active Ingredient: CHLORPHENIRAMINE MALEATE
Strength: 12MG
Dosage Form/Route: TABLET, EXTENDED RELEASE;ORAL
Application: A040829 | Product #001
Applicant: AVANTHI INC
Approved: May 13, 2009 | RLD: No | RS: Yes | Type: OTC